FAERS Safety Report 9830138 (Version 1)
Quarter: 2014Q1

REPORT INFORMATION
  Report Type: Spontaneous
  Country: US (occurrence: US)
  Receive Date: 20140120
  Receipt Date: 20140120
  Transmission Date: 20141002
  Serious: Yes (Other)
  Sender: FDA-Public Use
  Company Number: US-ELI_LILLY_AND_COMPANY-US201401005219

PATIENT
  Age: 4 Year
  Sex: Female

DRUGS (2)
  1. SOMATROPIN [Suspect]
     Indication: GROWTH HORMONE DEFICIENCY
     Dosage: 0.7 MG, 6/W
     Route: 058
  2. SOMATROPIN [Suspect]
     Dosage: 1.3 MG, 6/W
     Route: 058

REACTIONS (2)
  - Syringomyelia [Not Recovered/Not Resolved]
  - Disease progression [None]
